FAERS Safety Report 8138386-7 (Version None)
Quarter: 2012Q1

REPORT INFORMATION
  Report Type: 
  Country: None (occurrence: None)
  Receive Date: 20120215
  Receipt Date: 20120203
  Transmission Date: 20120608
  Serious: Yes (Hospitalization, Other)
  Sender: FDA-Public Use
  Company Number: AT-ROCHE-1015339

PATIENT
  Age: 56 Year
  Sex: Female
  Weight: 66 kg

DRUGS (3)
  1. IBUPROFEN [Suspect]
     Indication: ARTHRALGIA
     Dates: start: 20111117, end: 20111121
  2. VEMURAFENIB [Suspect]
     Dosage: DISCONTINUED
     Route: 048
     Dates: start: 20111121, end: 20111222
  3. VEMURAFENIB [Suspect]
     Indication: METASTATIC MALIGNANT MELANOMA
     Dosage: INTERRUPTED
     Route: 048
     Dates: start: 20111102, end: 20111119

REACTIONS (4)
  - RASH [None]
  - SQUAMOUS CELL CARCINOMA [None]
  - NEOPLASM PROGRESSION [None]
  - SQUAMOUS CELL CARCINOMA OF SKIN [None]
